FAERS Safety Report 10886649 (Version 2)
Quarter: 2015Q3

REPORT INFORMATION
  Report Type: Spontaneous
  Country: US (occurrence: US)
  Receive Date: 20150304
  Receipt Date: 20150715
  Transmission Date: 20151125
  Serious: No
  Sender: FDA-Public Use
  Company Number: US-GLAXOSMITHKLINE-US2015017826

PATIENT
  Sex: Female

DRUGS (2)
  1. AVODART [Suspect]
     Active Substance: DUTASTERIDE
     Indication: BILIARY CIRRHOSIS
     Dosage: 0.5 MG, QD
  2. URSODIOL. [Concomitant]
     Active Substance: URSODIOL

REACTIONS (1)
  - Off label use [Unknown]
